FAERS Safety Report 10111562 (Version 4)
Quarter: 2014Q3

REPORT INFORMATION
  Report Type: Spontaneous
  Country: PT (occurrence: PT)
  Receive Date: 20140425
  Receipt Date: 20140730
  Transmission Date: 20150326
  Serious: Yes (Life-Threatening)
  Sender: FDA-Public Use
  Company Number: PT-SA-2014SA048756

PATIENT
  Age: 63 Year
  Sex: Male
  Weight: 60 kg

DRUGS (8)
  1. THIAMINE [Concomitant]
     Active Substance: THIAMINE
     Indication: ALCOHOLISM
     Dosage: STRENGTH: 100 MG/2ML?FORM : SOLUTION FOR INJECTION.
     Route: 042
  2. TRENTAL [Suspect]
     Active Substance: PENTOXIFYLLINE
     Indication: PERIPHERAL ARTERIAL OCCLUSIVE DISEASE
     Route: 042
     Dates: start: 20140309, end: 20140311
  3. TRENTAL [Interacting]
     Active Substance: PENTOXIFYLLINE
     Indication: PERIPHERAL ARTERIAL OCCLUSIVE DISEASE
     Route: 042
     Dates: start: 20140309, end: 20140311
  4. TIENAM [Concomitant]
     Active Substance: CILASTATIN SODIUM\IMIPENEM
     Indication: DIABETIC FOOT
     Dosage: STRENGTH: 500 MG
     Route: 042
     Dates: start: 20140309
  5. TIAPRIDAL [Interacting]
     Active Substance: TIAPRIDE HYDROCHLORIDE
     Indication: ALCOHOL WITHDRAWAL SYNDROME
     Dosage: STRENGTH: 100 MG/2ML
     Route: 042
  6. TRENTAL [Interacting]
     Active Substance: PENTOXIFYLLINE
     Indication: PERIPHERAL ARTERIAL OCCLUSIVE DISEASE
     Route: 042
     Dates: start: 20140309, end: 20140311
  7. TIAPRIDAL [Interacting]
     Active Substance: TIAPRIDE HYDROCHLORIDE
     Indication: ALCOHOL WITHDRAWAL SYNDROME
     Dosage: STRENGTH: 100 MG/2ML
     Route: 042
  8. TIENAM [Concomitant]
     Active Substance: CILASTATIN SODIUM\IMIPENEM
     Indication: DIABETIC FOOT
     Dosage: STRENGTH: 500 MG
     Route: 042
     Dates: start: 20140309

REACTIONS (3)
  - Drug interaction [Unknown]
  - Torsade de pointes [Recovered/Resolved]
  - Hypokalaemia [Recovered/Resolved]

NARRATIVE: CASE EVENT DATE: 20140309
